FAERS Safety Report 9397535 (Version 11)
Quarter: 2016Q1

REPORT INFORMATION
  Report Type: Report from Study
  Country: US (occurrence: US)
  Receive Date: 20130712
  Receipt Date: 20160304
  Transmission Date: 20160526
  Serious: Yes (Hospitalization, Disabling, Other)
  Sender: FDA-Public Use
  Company Number: US-UCBSA-091168

PATIENT
  Age: 46 Year
  Sex: Male
  Weight: 150 kg

DRUGS (31)
  1. TERAZOSIN [Concomitant]
     Active Substance: TERAZOSIN\TERAZOSIN HYDROCHLORIDE
     Dosage: 10 MG, ONCE DAILY (QD)
  2. CITALOPRAM [Concomitant]
     Active Substance: CITALOPRAM HYDROBROMIDE
     Indication: ANXIETY
     Dosage: 20 MG, ONCE DAILY (QD)
     Route: 048
  3. LIPITOR [Concomitant]
     Active Substance: ATORVASTATIN CALCIUM
     Indication: BLOOD CHOLESTEROL
     Dosage: ONCE DAILY
     Route: 048
  4. LEVETIRACETAM. [Suspect]
     Active Substance: LEVETIRACETAM
     Indication: SEIZURE
     Dosage: 1500 MG, 2X/DAY (BID), 500 MG (3 IN MORNING AND 3 AT NIGHT)
     Route: 048
     Dates: start: 201305
  5. BYSTOLIC [Concomitant]
     Active Substance: NEBIVOLOL HYDROCHLORIDE
     Indication: HYPERTENSION
     Dosage: 20 MG, 2X/DAY (BID)
     Route: 048
  6. ALPRAZOLAM. [Concomitant]
     Active Substance: ALPRAZOLAM
     Indication: ANXIETY
     Dosage: 0.25 MG, EVERY 8 HOUR, AS NEEDED
     Route: 048
  7. TRAMADOL. [Concomitant]
     Active Substance: TRAMADOL
     Indication: PAIN
     Dosage: 50 MG, EVERY 4 HOUR, AS NEEDED
     Route: 048
  8. DILANTIN [Suspect]
     Active Substance: PHENYTOIN
     Dosage: TWO IN AM AND THREE IN PM AND WEANING DOWN
     Route: 048
     Dates: start: 201209, end: 201305
  9. DILANTIN [Suspect]
     Active Substance: PHENYTOIN
     Dosage: 300 MG, 2X/DAY (BID)
  10. DILANTIN [Suspect]
     Active Substance: PHENYTOIN
     Dosage: 200 MG, 2X/DAY (BID) FOR 1 WEEK
  11. DILANTIN [Suspect]
     Active Substance: PHENYTOIN
     Dosage: 100 MG DAILY FOR 1 WEEK
  12. HYDRALAZINE [Concomitant]
     Active Substance: HYDRALAZINE HYDROCHLORIDE
     Indication: HYPERTENSION
     Dosage: 10 MG, 4X/DAY (QID)
     Route: 048
     Dates: start: 201210
  13. SIMVASTINE [Concomitant]
     Indication: BLOOD CHOLESTEROL INCREASED
     Dosage: 40 MG, ONCE DAILY (QD)
  14. VIMPAT [Suspect]
     Active Substance: LACOSAMIDE
     Indication: SEIZURE
     Dosage: STRENGTH: 100 MG AND DAILY DOSE: 200 MG, EXPIRY DATE: 30-JUN-2016
     Route: 048
     Dates: start: 20121024
  15. DILANTIN [Suspect]
     Active Substance: PHENYTOIN
     Dosage: 100 MG, 2X/DAY (BID)
  16. CHLORTHALIDONE. [Concomitant]
     Active Substance: CHLORTHALIDONE
     Indication: BLOOD PRESSURE MEASUREMENT
     Dosage: DAILY DOSE: 25 MG
  17. DOCUSATE [Concomitant]
     Active Substance: DOCUSATE
     Indication: CONSTIPATION
     Dosage: 100 MG, BID, AS NEEDED
     Route: 048
  18. OMEPRAZOLE. [Concomitant]
     Active Substance: OMEPRAZOLE
     Indication: PRODUCT USED FOR UNKNOWN INDICATION
     Dosage: DAILY DOSE: 40 MG, DELAYED RELEASE CAPSULE
     Route: 048
  19. DILANTIN [Suspect]
     Active Substance: PHENYTOIN
     Indication: EPILEPSY
     Dosage: 400 MG, 2X/DAY (BID)
     Dates: start: 201109
  20. DILANTIN [Suspect]
     Active Substance: PHENYTOIN
     Dosage: 100 MG, EV 2 DAYS (QOD)
     Dates: end: 201404
  21. CLONIDINE. [Concomitant]
     Active Substance: CLONIDINE
     Indication: HYPERTENSION
     Dosage: .3 MG, 3X/DAY (TID)
     Route: 048
  22. METFORMIN [Concomitant]
     Active Substance: METFORMIN HYDROCHLORIDE
     Indication: BLOOD GLUCOSE
     Dosage: 500 MG, 2X/DAY (BID)
     Route: 048
     Dates: start: 201109
  23. ATORVASTATIN [Concomitant]
     Active Substance: ATORVASTATIN
     Indication: BLOOD CHOLESTEROL
     Dosage: 80 MG, NIGHTLY (BED TIME)
     Route: 048
  24. SPIRONOLACTONE. [Concomitant]
     Active Substance: SPIRONOLACTONE
     Indication: BLOOD PRESSURE MEASUREMENT
     Dosage: 50 MG
  25. MUPIROCIN. [Concomitant]
     Active Substance: MUPIROCIN
     Indication: PRODUCT USED FOR UNKNOWN INDICATION
     Dosage: UNK, APPLY 2X/DAY (BID), 2%
     Route: 061
  26. ZANTAC [Concomitant]
     Active Substance: RANITIDINE HYDROCHLORIDE
     Indication: DYSPEPSIA
     Dosage: 150 MG
  27. DILANTIN [Suspect]
     Active Substance: PHENYTOIN
     Dosage: 200 MG EVERY AM AND 300 MG EVERY BED TIME FOR 1 WEEK
  28. DILANTIN [Suspect]
     Active Substance: PHENYTOIN
     Dosage: 100 MG EVERY AM AND 200 MG EVERY BED TIME FOR 1 WEEK
  29. METFORMIN [Concomitant]
     Active Substance: METFORMIN HYDROCHLORIDE
     Indication: DIABETES MELLITUS
  30. ASA [Concomitant]
     Active Substance: ASPIRIN
     Indication: PROPHYLAXIS
     Dosage: 81 MG, ONCE DAILY (QD)
     Route: 048
  31. LOSARTAN. [Concomitant]
     Active Substance: LOSARTAN
     Indication: PRODUCT USED FOR UNKNOWN INDICATION
     Dosage: DAILY DOSE:100 MG
     Route: 048

REACTIONS (8)
  - Seizure [Unknown]
  - Oral disorder [Recovered/Resolved]
  - Transient ischaemic attack [Recovered/Resolved]
  - Weight decreased [Unknown]
  - Cerebrovascular accident [Recovered/Resolved]
  - Hernia [Not Recovered/Not Resolved]
  - Confusional state [Unknown]
  - Ulcer [Not Recovered/Not Resolved]

NARRATIVE: CASE EVENT DATE: 20121024
